FAERS Safety Report 12004709 (Version 1)
Quarter: 2016Q1

REPORT INFORMATION
  Report Type: Report from Study
  Country: US (occurrence: US)
  Receive Date: 20160204
  Receipt Date: 20160204
  Transmission Date: 20160526
  Serious: Yes (Other)
  Sender: FDA-Public Use
  Company Number: US-AMGEN-USASL2016011426

PATIENT
  Age: 72 Year
  Sex: Female

DRUGS (1)
  1. ENBREL [Suspect]
     Active Substance: ETANERCEPT
     Indication: PRODUCT USED FOR UNKNOWN INDICATION
     Dosage: UNK UNK, UNK
     Route: 065

REACTIONS (11)
  - Deep vein thrombosis [Unknown]
  - Chills [Unknown]
  - Staphylococcal infection [Unknown]
  - Peripheral swelling [Unknown]
  - Secretion discharge [Unknown]
  - Pain in extremity [Unknown]
  - Foot operation [Unknown]
  - Pyrexia [Unknown]
  - Fatigue [Unknown]
  - Fluid retention [Unknown]
  - Gait disturbance [Unknown]
